FAERS Safety Report 11454704 (Version 2)
Quarter: 2015Q4

REPORT INFORMATION
  Report Type: Spontaneous
  Country: US (occurrence: US)
  Receive Date: 20150831
  Receipt Date: 20151027
  Transmission Date: 20160304
  Serious: No
  Sender: FDA-Public Use
  Company Number: US-ELI_LILLY_AND_COMPANY-US201004008073

PATIENT
  Age: 63 Year
  Sex: Female

DRUGS (8)
  1. BUSPIRONE [Concomitant]
     Active Substance: BUSPIRONE HYDROCHLORIDE
     Dosage: 15 MG, DAILY (1/D)
  2. CYMBALTA [Suspect]
     Active Substance: DULOXETINE HYDROCHLORIDE
     Dosage: 180 MG, DAILY (1/D)
  3. TRIAMTERENE. [Concomitant]
     Active Substance: TRIAMTERENE
     Dosage: 60 MBQ, DAILY (1/D)
  4. FORTEO [Suspect]
     Active Substance: TERIPARATIDE
     Indication: OSTEOPOROSIS
     Dosage: 20 UG, DAILY (1/D)
     Dates: start: 20100325
  5. LYRICA [Concomitant]
     Active Substance: PREGABALIN
     Dosage: 65 MG, 2/D
  6. AMOXICILLIN. [Concomitant]
     Active Substance: AMOXICILLIN
     Dosage: 500 MG, 2/D
  7. BUSPIRONE [Concomitant]
     Active Substance: BUSPIRONE HYDROCHLORIDE
     Dosage: 25 MG, DAILY (1/D)
  8. LEVOTHYROXINE. [Concomitant]
     Active Substance: LEVOTHYROXINE
     Dosage: UNK, DAILY (1/D)

REACTIONS (5)
  - Tooth extraction [Unknown]
  - Drug dose omission [Recovered/Resolved]
  - Peripheral swelling [Unknown]
  - Injection site bruising [Unknown]
  - Tibia fracture [Unknown]

NARRATIVE: CASE EVENT DATE: 2010
